FAERS Safety Report 22171492 (Version 1)
Quarter: 2023Q2

REPORT INFORMATION
  Report Type: Report from Study
  Country: RO (occurrence: RO)
  Receive Date: 20230404
  Receipt Date: 20230404
  Transmission Date: 20230722
  Serious: Yes (Death, Other)
  Sender: FDA-Public Use
  Company Number: RO-AMGEN-ROUSL2022177542

PATIENT
  Age: 59 Year
  Sex: Male

DRUGS (1)
  1. VECTIBIX [Suspect]
     Active Substance: PANITUMUMAB
     Indication: Product used for unknown indication
     Dosage: UNK
     Route: 065

REACTIONS (8)
  - Death [Fatal]
  - Parkinson^s disease [Unknown]
  - Erythema [Unknown]
  - Fatigue [Unknown]
  - Malaise [Unknown]
  - Drug intolerance [Unknown]
  - Spondylitis [Unknown]
  - Disease progression [Unknown]

NARRATIVE: CASE EVENT DATE: 20230201
